FAERS Safety Report 17454563 (Version 1)
Quarter: 2020Q1

REPORT INFORMATION
  Report Type: Spontaneous
  Country: US (occurrence: US)
  Receive Date: 20200224
  Receipt Date: 20200224
  Transmission Date: 20200409
  Serious: Yes (Hospitalization, Disabling)
  Sender: FDA-Public Use
  Company Number: None

PATIENT
  Age: 36 Year
  Sex: Female

DRUGS (3)
  1. EMGALITY [Suspect]
     Active Substance: GALCANEZUMAB-GNLM
     Indication: MIGRAINE
     Dosage: ?          QUANTITY:1 INJECTION(S);OTHER FREQUENCY:1 MONTH;?
     Route: 058
     Dates: start: 20191005, end: 20200105
  2. TIZANADEN [Concomitant]
  3. ALMOTRIPTAN. [Concomitant]
     Active Substance: ALMOTRIPTAN

REACTIONS (8)
  - Panic reaction [None]
  - Neuropathy peripheral [None]
  - Anxiety [None]
  - Insomnia [None]
  - Weight decreased [None]
  - Nausea [None]
  - Impaired work ability [None]
  - Tremor [None]

NARRATIVE: CASE EVENT DATE: 20200105
